FAERS Safety Report 10311498 (Version 1)
Quarter: 2014Q3

REPORT INFORMATION
  Report Type: Spontaneous
  Country: CH (occurrence: None)
  Receive Date: 20140715
  Receipt Date: 20140715
  Transmission Date: 20150326
  Serious: Yes (Other)
  Sender: FDA-Public Use
  Company Number: 20140400

PATIENT
  Age: 92 Year
  Sex: Male
  Weight: 72 kg

DRUGS (5)
  1. FERINJECT [Suspect]
     Active Substance: FERRIC CARBOXYMALTOSE
     Indication: PRODUCT USED FOR UNKNOWN INDICATION
     Dosage: 500MG ONCE DAILY, INTRAVENOUS DRIP?
     Route: 041
     Dates: start: 20140414, end: 20140415
  2. PANTOZOL [Suspect]
     Active Substance: PANTOPRAZOLE SODIUM
     Indication: PRODUCT USED FOR UNKNOWN INDICATION
     Dosage: 40 MG ONCE DAILY, INTRAVENOUS BOLUS??
     Route: 040
     Dates: start: 20140413, end: 20140416
  3. METOPROLOL (METOPROLOL SUCCINATE) [Concomitant]
  4. SCHERIPROCT (CINCHOCAINE HYDROCHLORIDE, PREDNISOLONE CAPROATE) [Concomitant]
  5. PERENTEROL (YEAST DRIED, SACCHAROMYCES BOULARDII) [Concomitant]

REACTIONS (6)
  - Hyperbilirubinaemia [None]
  - Alanine aminotransferase increased [None]
  - Blood creatinine increased [None]
  - Gastroenteritis [None]
  - Aspartate aminotransferase increased [None]
  - Hyperlipasaemia [None]

NARRATIVE: CASE EVENT DATE: 20140417
